FAERS Safety Report 5662239-7 (Version None)
Quarter: 2008Q1

REPORT INFORMATION
  Report Type: 
  Country: None (occurrence: None)
  Receive Date: 20080312
  Receipt Date: 20080229
  Transmission Date: 20080703
  Serious: Yes (Other)
  Sender: FDA-Public Use
  Company Number: US-PFIZER INC-2008000444

PATIENT
  Sex: Female
  Weight: 62 kg

DRUGS (11)
  1. ADRIAMYCIN PFS [Suspect]
     Indication: BREAST CANCER
     Route: 042
  2. CYTOXAN [Suspect]
     Indication: BREAST CANCER
     Route: 042
  3. TAXOTERE [Suspect]
     Indication: BREAST CANCER
     Route: 042
     Dates: start: 20071204, end: 20071204
  4. NOVOLOG [Concomitant]
     Route: 058
  5. LANTUS [Concomitant]
     Route: 058
  6. DARVOCET [Concomitant]
  7. CHANTIX [Concomitant]
  8. LEXAPRO [Concomitant]
  9. NAPROXEN [Concomitant]
  10. RESTORIL [Concomitant]
  11. ROZEREM [Concomitant]

REACTIONS (2)
  - GENERALISED OEDEMA [None]
  - PAIN [None]
